FAERS Safety Report 8205909-9 (Version None)
Quarter: 2012Q1

REPORT INFORMATION
  Report Type: 
  Country: None (occurrence: None)
  Receive Date: 20120313
  Receipt Date: 20120308
  Transmission Date: 20120608
  Serious: Yes (Death, Hospitalization, Other)
  Sender: FDA-Public Use
  Company Number: PHHY2012TR020194

PATIENT
  Age: 52 Year
  Sex: Female

DRUGS (3)
  1. CHLORPROMAZINE HCL [Suspect]
     Indication: BIPOLAR DISORDER
     Dosage: 20 MG, PER DAT
  2. LITHIUM CARBONATE [Interacting]
     Indication: BIPOLAR DISORDER
     Dosage: 900 MG/ODD DAYS OF THE MONTH - 600 MG /EVEN DAYS OF THE MONTH
  3. DIURETICS [Interacting]

REACTIONS (23)
  - NAUSEA [None]
  - LETHARGY [None]
  - UNRESPONSIVE TO STIMULI [None]
  - SPEECH DISORDER [None]
  - VOMITING [None]
  - IRRITABILITY [None]
  - PYREXIA [None]
  - INSOMNIA [None]
  - ALTERED STATE OF CONSCIOUSNESS [None]
  - HYPOTONIA [None]
  - TOXICITY TO VARIOUS AGENTS [None]
  - ACUTE RESPIRATORY DISTRESS SYNDROME [None]
  - PNEUMONIA ASPIRATION [None]
  - GAIT DISTURBANCE [None]
  - DECREASED APPETITE [None]
  - DIARRHOEA [None]
  - COMA [None]
  - HYPERTENSION [None]
  - ANTIPSYCHOTIC DRUG LEVEL INCREASED [None]
  - HYPOREFLEXIA [None]
  - RESPIRATORY FAILURE [None]
  - GRAND MAL CONVULSION [None]
  - TACHYCARDIA [None]
